FAERS Safety Report 4922858-X (Version None)
Quarter: 2006Q1

REPORT INFORMATION
  Report Type: 
  Country: None (occurrence: None)
  Receive Date: 20060224
  Receipt Date: 20050930
  Transmission Date: 20060701
  Serious: Yes (Other)
  Sender: FDA-Public Use
  Company Number: US-MERCK-0510USA01279

PATIENT
  Age: 70 Year
  Sex: Male
  Weight: 64 kg

DRUGS (2)
  1. VIOXX [Suspect]
     Indication: ARTHRITIS
     Route: 048
     Dates: start: 19990722, end: 20040801
  2. LORCET-HD [Concomitant]
     Route: 065

REACTIONS (1)
  - CEREBROVASCULAR ACCIDENT [None]
